FAERS Safety Report 8462566-4 (Version None)
Quarter: 2012Q2

REPORT INFORMATION
  Report Type: 
  Country: None (occurrence: None)
  Receive Date: 20120619
  Receipt Date: 20120619
  Transmission Date: 20120825
  Serious: Yes (Death, Hospitalization)
  Sender: FDA-Public Use
  Company Number: None

PATIENT
  Age: 43 Year
  Sex: Female

DRUGS (9)
  1. DROSPIRENONE AND ETHINYL ESTRADIOL [Concomitant]
  2. ZOFRAN [Concomitant]
  3. XELODA [Concomitant]
  4. PROMACTA [Suspect]
     Indication: THROMBOCYTOPENIA
     Dosage: 50MG QD DAILY
  5. PROAIR HFA [Concomitant]
  6. PERCOCET [Concomitant]
  7. XANAX [Concomitant]
  8. DURAGESIC-100 [Concomitant]
  9. COLACE [Concomitant]

REACTIONS (7)
  - HYPOPHAGIA [None]
  - MALNUTRITION [None]
  - VAGINAL HAEMORRHAGE [None]
  - LETHARGY [None]
  - REFUSAL OF TREATMENT BY PATIENT [None]
  - RENAL FAILURE ACUTE [None]
  - CONFUSIONAL STATE [None]
